FAERS Safety Report 5127432-0 (Version None)
Quarter: 2006Q4

REPORT INFORMATION
  Report Type: 
  Country: None (occurrence: None)
  Receive Date: 20061010
  Receipt Date: 20060927
  Transmission Date: 20070319
  Serious: Yes (Death, Other)
  Sender: FDA-Public Use
  Company Number: 2006115481

PATIENT
  Sex: Male

DRUGS (2)
  1. LIPITOR [Suspect]
     Dosage: (20 MG), ORAL
     Route: 048
  2. FUSIDIC ACID [Suspect]
     Indication: WOUND INFECTION

REACTIONS (7)
  - DIALYSIS [None]
  - DRUG INTERACTION [None]
  - PERIPHERAL VASCULAR DISORDER [None]
  - RENAL FAILURE [None]
  - RHABDOMYOLYSIS [None]
  - SEPSIS [None]
  - WOUND INFECTION [None]
